FAERS Safety Report 9733692 (Version 1)
Quarter: 2013Q4

REPORT INFORMATION
  Report Type: Report from Study
  Country: US (occurrence: US)
  Receive Date: 20131205
  Receipt Date: 20131205
  Transmission Date: 20140711
  Serious: Yes (Hospitalization)
  Sender: FDA-Public Use
  Company Number: US-ABBVIE-13P-163-1174242-00

PATIENT
  Age: 25 Year
  Sex: Female
  Weight: 90.8 kg

DRUGS (4)
  1. HUMIRA [Suspect]
     Indication: ANKYLOSING SPONDYLITIS
     Route: 058
     Dates: start: 2010
  2. HUMIRA [Suspect]
     Dates: start: 20131121
  3. UNKNOWN [Concomitant]
     Indication: CONTRACEPTION
  4. MELOXICAM [Concomitant]
     Indication: ANKYLOSING SPONDYLITIS

REACTIONS (7)
  - Inflammation [Recovered/Resolved]
  - Meningitis viral [Recovered/Resolved]
  - Headache [Recovered/Resolved]
  - Musculoskeletal stiffness [Recovered/Resolved]
  - Ankylosing spondylitis [Recovered/Resolved]
  - Ankylosing spondylitis [Recovered/Resolved]
  - Ankylosing spondylitis [Unknown]
